FAERS Safety Report 23880010 (Version 2)
Quarter: 2024Q2

REPORT INFORMATION
  Report Type: Report from Study
  Country: FR (occurrence: FR)
  Receive Date: 20240521
  Receipt Date: 20240523
  Transmission Date: 20240716
  Serious: Yes (Other)
  Sender: FDA-Public Use
  Company Number: FR-ALNYLAM PHARMACEUTICALS, INC.-ALN-2024-002799

PATIENT

DRUGS (1)
  1. ONPATTRO [Suspect]
     Active Substance: PATISIRAN SODIUM
     Indication: Product used for unknown indication
     Dosage: UNK
     Route: 065

REACTIONS (6)
  - Deafness [Unknown]
  - Diarrhoea [Unknown]
  - Malaise [Unknown]
  - Abdominal distension [Unknown]
  - Fall [Unknown]
  - Photopsia [Unknown]

NARRATIVE: CASE EVENT DATE: 20240321
